FAERS Safety Report 6704682-0 (Version None)
Quarter: 2010Q2

REPORT INFORMATION
  Report Type: 
  Country: None (occurrence: None)
  Receive Date: 20100430
  Receipt Date: 20100427
  Transmission Date: 20101027
  Serious: Yes (Death, Hospitalization)
  Sender: FDA-Public Use
  Company Number: HU-ROCHE-699456

PATIENT
  Sex: Male
  Weight: 78 kg

DRUGS (3)
  1. PEGINTERFERON ALFA-2A [Suspect]
     Indication: DRUG USE FOR UNKNOWN INDICATION
     Dosage: DATE OF LAST DOSE PRIOR TO SADR: 19 MAR 2010
     Route: 058
     Dates: start: 20090911, end: 20100322
  2. RIBAVIRIN [Suspect]
     Indication: DRUG USE FOR UNKNOWN INDICATION
     Dosage: DATE OF LAST DOSE PRIOR TO SADR: 19 MAR 2010
     Route: 048
     Dates: start: 20090911, end: 20100322
  3. RUBOPHEN [Concomitant]
     Dates: start: 20100319, end: 20100321

REACTIONS (1)
  - CEREBROVASCULAR ACCIDENT [None]
